FAERS Safety Report 9273768 (Version 2)
Quarter: 2014Q3

REPORT INFORMATION
  Report Type: Spontaneous
  Country: US (occurrence: US)
  Receive Date: 20130506
  Receipt Date: 20140708
  Transmission Date: 20150326
  Serious: Yes (Other)
  Sender: FDA-Public Use
  Company Number: US-AMGEN-USASP2013022159

PATIENT
  Age: 57 Year
  Sex: Male

DRUGS (3)
  1. METHOTREXATE [Concomitant]
     Active Substance: METHOTREXATE
     Dosage: 12.5 MG, QWK
  2. ENBREL [Suspect]
     Active Substance: ETANERCEPT
     Indication: PSORIATIC ARTHROPATHY
     Dosage: 50 MG, QWK
     Route: 065
     Dates: start: 20130301
  3. ENBREL [Suspect]
     Active Substance: ETANERCEPT
     Indication: PSORIASIS
     Dosage: UNK
     Route: 065

REACTIONS (11)
  - Pneumonia [Not Recovered/Not Resolved]
  - Pain in extremity [Not Recovered/Not Resolved]
  - Musculoskeletal stiffness [Not Recovered/Not Resolved]
  - Bronchitis [Not Recovered/Not Resolved]
  - Arthralgia [Not Recovered/Not Resolved]
  - Joint stiffness [Not Recovered/Not Resolved]
  - Back pain [Not Recovered/Not Resolved]
  - Local swelling [Not Recovered/Not Resolved]
  - Psoriasis [Not Recovered/Not Resolved]
  - Joint swelling [Not Recovered/Not Resolved]
  - Mass [Not Recovered/Not Resolved]

NARRATIVE: CASE EVENT DATE: 20130301
